FAERS Safety Report 7262284-4 (Version None)
Quarter: 2011Q1

REPORT INFORMATION
  Report Type: 
  Country: None (occurrence: None)
  Receive Date: 20110130
  Receipt Date: 20101112
  Transmission Date: 20110831
  Serious: No
  Sender: FDA-Public Use
  Company Number: US-ABBOTT-10P-163-0685664-00

PATIENT
  Sex: Female
  Weight: 88.076 kg

DRUGS (6)
  1. SYNTHROID [Concomitant]
     Indication: HYPOTHYROIDISM
  2. METFORMIN [Concomitant]
     Indication: DIABETES MELLITUS
  3. SETRALINE [Concomitant]
     Indication: DEPRESSION
  4. FOSINOPRIL [Concomitant]
     Indication: HYPERTENSION
  5. SIMVASTATIN [Concomitant]
     Indication: BLOOD CHOLESTEROL INCREASED
  6. HUMIRA [Suspect]
     Indication: PSORIASIS
     Dates: start: 20100801, end: 20100801

REACTIONS (7)
  - RASH PUSTULAR [None]
  - CHILLS [None]
  - DIARRHOEA [None]
  - MALAISE [None]
  - INJECTION SITE REACTION [None]
  - NAUSEA [None]
  - ABDOMINAL DISCOMFORT [None]
